FAERS Safety Report 5534295-8 (Version None)
Quarter: 2007Q4

REPORT INFORMATION
  Report Type: 
  Country: None (occurrence: None)
  Receive Date: 20071203
  Receipt Date: 20071203
  Transmission Date: 20080405
  Serious: Yes (Disabling)
  Sender: FDA-Public Use
  Company Number: None

PATIENT
  Sex: Male

DRUGS (3)
  1. DEXEDRINE [Suspect]
     Indication: ATTENTION DEFICIT/HYPERACTIVITY DISORDER
  2. DEXEDRINE [Suspect]
     Indication: MENTAL RETARDATION SEVERITY UNSPECIFIED
  3. DEXEDRINE TAB [Suspect]
     Indication: AFFECTIVE DISORDER

REACTIONS (3)
  - AGGRESSION [None]
  - GENERAL PHYSICAL HEALTH DETERIORATION [None]
  - THERAPEUTIC RESPONSE UNEXPECTED WITH DRUG SUBSTITUTION [None]
